FAERS Safety Report 13328840 (Version 1)
Quarter: 2017Q1

REPORT INFORMATION
  Report Type: Spontaneous
  Country: US (occurrence: US)
  Receive Date: 20170312
  Receipt Date: 20170312
  Transmission Date: 20170428
  Serious: Yes (Other)
  Sender: FDA-Public Use
  Company Number: None

PATIENT
  Age: 50 Year
  Sex: Female
  Weight: 78.75 kg

DRUGS (6)
  1. ORACEA [Concomitant]
     Active Substance: DOXYCYCLINE
  2. SYNTHROID [Concomitant]
     Active Substance: LEVOTHYROXINE SODIUM
  3. SULFA SKIN CLEANSER [Concomitant]
  4. MIRVASO [Suspect]
     Active Substance: BRIMONIDINE TARTRATE
     Indication: ROSACEA
     Dosage: ?          QUANTITY:1 APPLICATION;?
     Route: 061
     Dates: start: 20170102, end: 20170310
  5. PROBIOTIC [Concomitant]
     Active Substance: PROBIOTICS NOS
  6. TURMERIC [Concomitant]
     Active Substance: TURMERIC

REACTIONS (3)
  - Flushing [None]
  - Pain [None]
  - Discomfort [None]

NARRATIVE: CASE EVENT DATE: 20170310
